FAERS Safety Report 6640651-7 (Version None)
Quarter: 2010Q1

REPORT INFORMATION
  Report Type: 
  Country: None (occurrence: None)
  Receive Date: 20100318
  Receipt Date: 20100311
  Transmission Date: 20100710
  Serious: Yes (Other)
  Sender: FDA-Public Use
  Company Number: US-GENENTECH-299204

PATIENT
  Sex: Female

DRUGS (7)
  1. RITUXAN [Suspect]
     Indication: NON-HODGKIN'S LYMPHOMA
     Dosage: 610 MG, UNK
     Route: 042
  2. RITUXAN [Suspect]
     Dosage: 660 MG, UNK
     Route: 042
  3. RITUXAN [Suspect]
     Dosage: 610 MG, UNK
     Route: 042
     Dates: start: 20100304
  4. RITUXAN [Suspect]
     Dosage: 660 MG, UNK
     Route: 042
     Dates: start: 20100311
  5. BENADRYL [Concomitant]
     Indication: PREMEDICATION
  6. DECADRON [Concomitant]
     Indication: PREMEDICATION
  7. NORPACE [Concomitant]
     Indication: DRUG USE FOR UNKNOWN INDICATION

REACTIONS (5)
  - ATRIAL FIBRILLATION [None]
  - BACK PAIN [None]
  - HEADACHE [None]
  - INFECTION [None]
  - TACHYCARDIA [None]
